FAERS Safety Report 16392899 (Version 12)
Quarter: 2020Q2

REPORT INFORMATION
  Report Type: Spontaneous
  Country: JP (occurrence: JP)
  Receive Date: 20190605
  Receipt Date: 20200617
  Transmission Date: 20200713
  Serious: Yes (Death, Hospitalization, Other)
  Sender: FDA-Public Use
  Company Number: JP-AMGEN-JPNSP2019086540

PATIENT
  Age: 88 Year
  Sex: Female
  Weight: 39.6 kg

DRUGS (15)
  1. NESP [Concomitant]
     Active Substance: DARBEPOETIN ALFA
     Indication: PRODUCT USED FOR UNKNOWN INDICATION
     Dosage: 10 UG, QW??2018/08/10?
     Route: 042
     Dates: end: 20180810
  2. OXAROL [Concomitant]
     Active Substance: MAXACALCITOL
     Dosage: 5 MICROGRAM, 3 TIMES/WK
     Route: 051
     Dates: start: 20180817, end: 20180919
  3. KALIMATE [Concomitant]
     Active Substance: CALCIUM POLYSTYRENE SULFONATE
     Dosage: 75 G, EVERYDAY
     Route: 048
     Dates: end: 20180719
  4. RIONA [Concomitant]
     Active Substance: FERRIC CITRATE ANHYDROUS
     Indication: PRODUCT USED FOR UNKNOWN INDICATION
     Dosage: 250 MG, EVERYDAY
     Route: 048
     Dates: end: 20190131
  5. KALIMATE [Concomitant]
     Active Substance: CALCIUM POLYSTYRENE SULFONATE
     Indication: PRODUCT USED FOR UNKNOWN INDICATION
     Dosage: 25 G, EVERYDAY
     Route: 048
     Dates: end: 20180719
  6. PARSABIV [Suspect]
     Active Substance: ETELCALCETIDE HYDROCHLORIDE
     Indication: HYPERPARATHYROIDISM SECONDARY
     Dosage: 5 MG, Q56H
     Route: 010
     Dates: start: 20180723, end: 20180815
  7. OXAROL [Concomitant]
     Active Substance: MAXACALCITOL
     Dosage: 5 UG, Q56H?2019/03/15??
     Route: 042
     Dates: start: 20190315, end: 20190524
  8. PARSABIV [Suspect]
     Active Substance: ETELCALCETIDE HYDROCHLORIDE
     Dosage: 2.5 MG, Q56H
     Route: 010
     Dates: start: 20180817, end: 20190125
  9. NESP [Concomitant]
     Active Substance: DARBEPOETIN ALFA
     Dosage: 20 UG, QW?2018/08/17 ??
     Route: 042
     Dates: start: 20180817, end: 20190115
  10. OXAROL [Concomitant]
     Active Substance: MAXACALCITOL
     Dosage: 2.5 MICROGRAM, 3 TIMES/WK
     Route: 051
     Dates: start: 20180402, end: 20180815
  11. NESP [Concomitant]
     Active Substance: DARBEPOETIN ALFA
     Dosage: 40 UG, QW
     Route: 042
     Dates: start: 20190215, end: 20190614
  12. OXAROL [Concomitant]
     Active Substance: MAXACALCITOL
     Dosage: 5 MICROGRAM, 3 TIMES/WK
     Route: 051
     Dates: start: 20190315, end: 20190524
  13. OXAROL [Concomitant]
     Active Substance: MAXACALCITOL
     Dosage: 5.0 UG, Q56H?2018/08/17?2018/09/19?
     Route: 042
     Dates: start: 20180817, end: 20180919
  14. PARSABIV [Suspect]
     Active Substance: ETELCALCETIDE HYDROCHLORIDE
     Dosage: 2.5 MG, Q56H
     Route: 010
     Dates: start: 20190211, end: 20190524
  15. OXAROL [Concomitant]
     Active Substance: MAXACALCITOL
     Dosage: 2.5 UG, Q56H?2018/04/02?2018/08/15?
     Route: 042
     Dates: start: 20180402, end: 20180815

REACTIONS (6)
  - Cardiac failure [Recovering/Resolving]
  - Bile duct obstruction [Recovered/Resolved]
  - Cellulitis [Recovering/Resolving]
  - Shunt occlusion [Recovered/Resolved]
  - Shunt occlusion [Recovered/Resolved]
  - Gallbladder cancer [Fatal]

NARRATIVE: CASE EVENT DATE: 20181217
